FAERS Safety Report 12446437 (Version 1)
Quarter: 2016Q2

REPORT INFORMATION
  Report Type: Spontaneous
  Country: US (occurrence: None)
  Receive Date: 20160607
  Receipt Date: 20160607
  Transmission Date: 20160815
  Serious: Yes (Other)
  Sender: FDA-Public Use
  Company Number: None

PATIENT
  Age: 7 Year
  Sex: Male
  Weight: 19.05 kg

DRUGS (4)
  1. ARIPIPRAZOLE 5 MG [Suspect]
     Active Substance: ARIPIPRAZOLE
     Indication: IRRITABILITY
  2. PROAIR HFA [Concomitant]
     Active Substance: ALBUTEROL SULFATE
  3. ARIPIPRAZOLE 5 MG [Suspect]
     Active Substance: ARIPIPRAZOLE
     Indication: AUTISM
  4. NORDITROPIN [Concomitant]
     Active Substance: SOMATROPIN

REACTIONS (2)
  - Tooth loss [None]
  - Bone disorder [None]

NARRATIVE: CASE EVENT DATE: 20160605
